FAERS Safety Report 11193175 (Version 1)
Quarter: 2015Q2

REPORT INFORMATION
  Report Type: Spontaneous
  Country: US (occurrence: US)
  Receive Date: 20150616
  Receipt Date: 20150616
  Transmission Date: 20150821
  Serious: Yes (Hospitalization, Other)
  Sender: FDA-Public Use
  Company Number: US-JNJFOC-20150605825

PATIENT
  Age: 85 Year
  Sex: Female
  Weight: 52.62 kg

DRUGS (1)
  1. XARELTO [Suspect]
     Active Substance: RIVAROXABAN
     Indication: PULMONARY EMBOLISM
     Route: 048
     Dates: start: 201312, end: 201405

REACTIONS (8)
  - Dyspnoea [Unknown]
  - Fluid retention [Unknown]
  - Pneumonia [Unknown]
  - Oedema [Unknown]
  - Thrombosis [Unknown]
  - Weight decreased [Not Recovered/Not Resolved]
  - Adverse event [Unknown]
  - Decreased appetite [Unknown]

NARRATIVE: CASE EVENT DATE: 201502
